FAERS Safety Report 7458505-5 (Version None)
Quarter: 2011Q2

REPORT INFORMATION
  Report Type: 
  Country: None (occurrence: None)
  Receive Date: 20110504
  Receipt Date: 20110429
  Transmission Date: 20111010
  Serious: Yes (Hospitalization)
  Sender: FDA-Public Use
  Company Number: FR-PFIZER INC-2011092424

PATIENT
  Age: 64 Year
  Sex: Female

DRUGS (7)
  1. ACUPAN [Concomitant]
     Dosage: UNKNOWN
  2. CALCIPARINE [Suspect]
     Indication: THROMBOSIS
     Dosage: 1 DF, 2X/DAY
     Route: 058
     Dates: start: 20110303, end: 20110315
  3. AVLOCARDYL [Suspect]
     Indication: ARRHYTHMIA
     Dosage: 40 MG, 2X/DAY
     Route: 048
     Dates: start: 20110312, end: 20110315
  4. RELISTOR [Concomitant]
     Dosage: UNKNOWN
  5. DEBRIDAT ^JOUVEINAL^ [Concomitant]
     Dosage: UNKNOWN
  6. SOLU-MEDROL [Suspect]
     Indication: INFLAMMATION
     Dosage: 60 MG, 1X/DAY
     Dates: start: 20110304
  7. TIAPRIDAL [Suspect]
     Indication: AGITATION
     Dosage: 5 DF, 2X/DAY
     Route: 048
     Dates: start: 20110310

REACTIONS (1)
  - THROMBOCYTOPENIA [None]
